FAERS Safety Report 20902519 (Version 1)
Quarter: 2022Q2

REPORT INFORMATION
  Report Type: Spontaneous
  Country: IN (occurrence: IN)
  Receive Date: 20220601
  Receipt Date: 20220601
  Transmission Date: 20220720
  Serious: Yes (Hospitalization)
  Sender: FDA-Public Use
  Company Number: IN-ENDO PHARMACEUTICALS INC-2022-003242

PATIENT
  Age: 43 Year
  Sex: Female

DRUGS (6)
  1. COLY-MYCIN M [Suspect]
     Active Substance: COLISTIMETHATE SODIUM
     Indication: Septic shock
     Dosage: 3 MILLION UNIT, TID (STARTED EMPIRICALLY)
     Route: 042
  2. COLY-MYCIN M [Suspect]
     Active Substance: COLISTIMETHATE SODIUM
     Indication: Pseudomonas infection
  3. MEROPENEM [Suspect]
     Active Substance: MEROPENEM
     Indication: Septic shock
     Dosage: UNK UNKNOWN, UNKNOWN (STARTED EMPIRICALLY)
     Route: 065
  4. MEROPENEM [Suspect]
     Active Substance: MEROPENEM
     Indication: Pseudomonas infection
  5. TARGOCID [Suspect]
     Active Substance: TEICOPLANIN
     Indication: Septic shock
     Dosage: UNK UNKNOWN, UNKNOWN (STARTED EMPIRICALLY)
     Route: 065
  6. TARGOCID [Suspect]
     Active Substance: TEICOPLANIN
     Indication: Pseudomonas infection

REACTIONS (1)
  - Pseudo-Bartter syndrome [Recovered/Resolved]
